FAERS Safety Report 11193013 (Version 2)
Quarter: 2015Q2

REPORT INFORMATION
  Report Type: Spontaneous
  Country: NL (occurrence: NL)
  Receive Date: 20150616
  Receipt Date: 20150626
  Transmission Date: 20150821
  Serious: Yes (Death, Other)
  Sender: FDA-Public Use
  Company Number: NL-TOLMAR, INC.-2015NL005255

PATIENT
  Age: 60 Year
  Sex: Male

DRUGS (1)
  1. ELIGARD [Suspect]
     Active Substance: LEUPROLIDE ACETATE
     Indication: PROSTATE CANCER
     Dosage: 45 MG, ONCE EVERY 6 MONTHS
     Route: 058

REACTIONS (2)
  - Hepatitis C [Unknown]
  - Hepatic failure [Fatal]

NARRATIVE: CASE EVENT DATE: 20150528
